FAERS Safety Report 5029516-4 (Version None)
Quarter: 2006Q2

REPORT INFORMATION
  Report Type: 
  Country: None (occurrence: None)
  Receive Date: 20060620
  Receipt Date: 20050921
  Transmission Date: 20061013
  Serious: No
  Sender: FDA-Public Use
  Company Number: US-GLAXOSMITHKLINE-A0575234A

PATIENT
  Age: 36 Year
  Sex: Female

DRUGS (2)
  1. ZYBAN [Suspect]
     Dosage: 150MG PER DAY
     Route: 048
     Dates: start: 20050901
  2. NO CONCURRENT MEDICATION [Concomitant]

REACTIONS (1)
  - DERMATITIS ACNEIFORM [None]
